FAERS Safety Report 8411969-2 (Version None)
Quarter: 2012Q2

REPORT INFORMATION
  Report Type: 
  Country: None (occurrence: None)
  Receive Date: 20120605
  Receipt Date: 20120430
  Transmission Date: 20120825
  Serious: No
  Sender: FDA-Public Use
  Company Number: US-AMGEN-USASP2012013781

PATIENT
  Age: 59 Year
  Sex: Male
  Weight: 112.47 kg

DRUGS (3)
  1. METHOTREXATE [Suspect]
     Indication: RHEUMATOID ARTHRITIS
     Dosage: 25 MG, QWK
     Route: 048
     Dates: start: 20111104, end: 20120203
  2. TRAMADOL HCL [Concomitant]
     Indication: PAIN
     Dosage: 50 MG, Q8 PRN
     Route: 048
     Dates: start: 20120130
  3. ENBREL [Suspect]
     Indication: RHEUMATOID ARTHRITIS
     Dosage: 50 MG, QWK
     Route: 058
     Dates: start: 20111104, end: 20120301

REACTIONS (2)
  - CONTUSION [None]
  - ULCER [None]
